FAERS Safety Report 19384455 (Version 1)
Quarter: 2021Q2

REPORT INFORMATION
  Report Type: Spontaneous
  Country: US (occurrence: US)
  Receive Date: 20210607
  Receipt Date: 20210607
  Transmission Date: 20210717
  Serious: Yes (Other)
  Sender: FDA-Public Use
  Company Number: US-SEATTLE GENETICS-2021SGN03056

PATIENT
  Sex: Female

DRUGS (4)
  1. TUKYSA [Suspect]
     Active Substance: TUCATINIB
     Indication: BREAST CANCER FEMALE
     Dosage: UNK UNK, BID
     Route: 048
     Dates: start: 20200807
  2. TUKYSA [Suspect]
     Active Substance: TUCATINIB
     Dosage: UNK
  3. XELODA [Suspect]
     Active Substance: CAPECITABINE
     Indication: BREAST CANCER FEMALE
     Route: 048
  4. HERCEPTIN [Suspect]
     Active Substance: TRASTUZUMAB
     Indication: BREAST CANCER FEMALE
     Route: 042

REACTIONS (13)
  - Tooth disorder [Unknown]
  - Rash [Unknown]
  - Neoplasm progression [Unknown]
  - Fall [Unknown]
  - Illness [Unknown]
  - Lung disorder [Unknown]
  - Pneumonia [Unknown]
  - Hepatic enzyme increased [Recovered/Resolved]
  - Nausea [Unknown]
  - Hyperaesthesia [Recovered/Resolved]
  - Emotional distress [Unknown]
  - Memory impairment [Unknown]
  - Diarrhoea [Recovered/Resolved]
